FAERS Safety Report 13449841 (Version 1)
Quarter: 2017Q2

REPORT INFORMATION
  Report Type: Spontaneous
  Country: US (occurrence: US)
  Receive Date: 20170417
  Receipt Date: 20170417
  Transmission Date: 20170830
  Serious: No
  Sender: FDA-Public Use
  Company Number: US-BION-20160078

PATIENT
  Age: 83 Year
  Sex: Female
  Weight: 84.82 kg

DRUGS (4)
  1. ALEVE [Suspect]
     Active Substance: NAPROXEN SODIUM
     Indication: ARTHRITIS
     Dosage: 1 DSF TAKEN TWICE DAILY
     Route: 048
  2. VITAMIN D [Concomitant]
     Active Substance: CHOLECALCIFEROL
  3. SLEEPING PILL [Concomitant]
  4. UNKNOWN HIGH BLOOD PRESSURE MEDICATION [Concomitant]

REACTIONS (2)
  - Poor quality drug administered [Unknown]
  - Product physical issue [Unknown]
